FAERS Safety Report 7048872-9 (Version None)
Quarter: 2010Q4

REPORT INFORMATION
  Report Type: 
  Country: None (occurrence: None)
  Receive Date: 20101012
  Receipt Date: 20100915
  Transmission Date: 20110411
  Serious: Yes (Death)
  Sender: FDA-Public Use
  Company Number: 20074355

PATIENT
  Age: 6 Year
  Sex: Male

DRUGS (1)
  1. LIORESAL [Suspect]
     Indication: MUSCLE SPASTICITY
     Dosage: 555 MCG, DAILY, INTRATHECAL
     Route: 037

REACTIONS (14)
  - ATELECTASIS [None]
  - CARDIO-RESPIRATORY ARREST [None]
  - CSF TEST ABNORMAL [None]
  - HAEMODYNAMIC INSTABILITY [None]
  - HYPERGLYCAEMIA [None]
  - HYPERNATRAEMIA [None]
  - HYPOTENSION [None]
  - IMPLANT SITE EROSION [None]
  - METABOLIC ACIDOSIS [None]
  - PNEUMONIA [None]
  - PULMONARY OEDEMA [None]
  - STAPHYLOCOCCAL BACTERAEMIA [None]
  - STAPHYLOCOCCUS TEST POSITIVE [None]
  - WOUND INFECTION STAPHYLOCOCCAL [None]
